FAERS Safety Report 13060554 (Version 1)
Quarter: 2016Q4

REPORT INFORMATION
  Report Type: Report from Study
  Country: US (occurrence: US)
  Receive Date: 20161224
  Receipt Date: 20161224
  Transmission Date: 20170207
  Serious: Yes (Hospitalization)
  Sender: FDA-Public Use
  Company Number: US-JNJFOC-20161218974

PATIENT
  Sex: Female

DRUGS (6)
  1. ESTRADIOL. [Concomitant]
     Active Substance: ESTRADIOL
  2. OXYBUTYNIN [Concomitant]
     Active Substance: OXYBUTYNIN
  3. IMBRUVICA [Suspect]
     Active Substance: IBRUTINIB
     Indication: CHRONIC LYMPHOCYTIC LEUKAEMIA
     Route: 048
     Dates: start: 20160323, end: 2016
  4. LYRICA [Concomitant]
     Active Substance: PREGABALIN
  5. MORPHINE [Concomitant]
     Active Substance: MORPHINE
  6. TEMAZEPAM. [Concomitant]
     Active Substance: TEMAZEPAM

REACTIONS (3)
  - Urinary tract infection [Unknown]
  - Pericardial effusion [Unknown]
  - Pleural effusion [Unknown]

NARRATIVE: CASE EVENT DATE: 2016
